FAERS Safety Report 11841562 (Version 1)
Quarter: 2015Q4

REPORT INFORMATION
  Report Type: Spontaneous
  Country: US (occurrence: US)
  Receive Date: 20151216
  Receipt Date: 20151216
  Transmission Date: 20160305
  Serious: No
  Sender: FDA-Public Use
  Company Number: US-BAUSCH-SP08826

PATIENT
  Age: 31 Year
  Sex: Female
  Weight: 68.1 kg

DRUGS (2)
  1. APRISO [Suspect]
     Active Substance: MESALAMINE
     Indication: CROHN^S DISEASE
     Route: 048
     Dates: start: 201312
  2. VITAMINS [Concomitant]
     Active Substance: VITAMINS

REACTIONS (2)
  - Pregnancy [Recovered/Resolved]
  - Breast feeding [Not Recovered/Not Resolved]

NARRATIVE: CASE EVENT DATE: 201311
